FAERS Safety Report 6117406-5 (Version None)
Quarter: 2009Q1

REPORT INFORMATION
  Report Type: 
  Country: None (occurrence: None)
  Receive Date: 20090314
  Receipt Date: 20090115
  Transmission Date: 20090719
  Serious: No
  Sender: FDA-Public Use
  Company Number: US-ABBOTT-09P-163-0498262-00

PATIENT
  Sex: Female
  Weight: 72.64 kg

DRUGS (2)
  1. HUMIRA [Suspect]
     Indication: PSORIATIC ARTHROPATHY
     Dates: start: 20081001
  2. HUMIRA [Suspect]
     Indication: PSORIASIS

REACTIONS (2)
  - OROPHARYNGEAL PAIN [None]
  - PAIN [None]
